FAERS Safety Report 19255018 (Version 1)
Quarter: 2021Q2

REPORT INFORMATION
  Report Type: Spontaneous
  Country: US (occurrence: US)
  Receive Date: 20210513
  Receipt Date: 20210513
  Transmission Date: 20210717
  Serious: Yes (Other)
  Sender: FDA-Public Use
  Company Number: US-PFIZER INC-2021476422

PATIENT
  Age: 83 Year
  Sex: Female

DRUGS (2)
  1. LYRICA [Suspect]
     Active Substance: PREGABALIN
     Dosage: 25 MG (25 MG FOR 3 DAYS)
  2. LYRICA [Suspect]
     Active Substance: PREGABALIN
     Dosage: 25 MG (HALF OR LESS THAN HALF EACH TIME)

REACTIONS (9)
  - Gait inability [Unknown]
  - Renal disorder [Unknown]
  - Hypoacusis [Unknown]
  - Atrial fibrillation [Unknown]
  - Strabismus [Unknown]
  - Cardiac disorder [Unknown]
  - Speech disorder [Unknown]
  - Vision blurred [Unknown]
  - Somnolence [Unknown]
